FAERS Safety Report 4447038-6 (Version None)
Quarter: 2004Q3

REPORT INFORMATION
  Report Type: 
  Country: None (occurrence: None)
  Receive Date: 20040812
  Receipt Date: 20040614
  Transmission Date: 20050211
  Serious: No
  Sender: FDA-Public Use
  Company Number: US_0404102480

PATIENT
  Age: 66 Year
  Sex: Male
  Weight: 95 kg

DRUGS (3)
  1. CIALIS [Suspect]
     Indication: ERECTILE DYSFUNCTION
     Dosage: 20MG
     Dates: start: 20040421
  2. LISINOPRIL [Concomitant]
  3. MICARDIS [Concomitant]

REACTIONS (3)
  - DRUG INEFFECTIVE [None]
  - FLUSHING [None]
  - THERAPEUTIC RESPONSE DECREASED [None]
